FAERS Safety Report 7493723-1 (Version None)
Quarter: 2011Q2

REPORT INFORMATION
  Report Type: 
  Country: None (occurrence: None)
  Receive Date: 20110520
  Receipt Date: 20110511
  Transmission Date: 20111010
  Serious: Yes (Hospitalization)
  Sender: FDA-Public Use
  Company Number: JP-PFIZER INC-2011106094

PATIENT
  Age: 78 Year
  Sex: Female

DRUGS (3)
  1. DOXORUBICIN HYDROCHLORIDE [Suspect]
     Indication: HEPATIC NEOPLASM MALIGNANT RECURRENT
     Dosage: 30 MG
     Route: 013
  2. MITOMYCIN [Suspect]
     Indication: HEPATIC NEOPLASM MALIGNANT RECURRENT
     Dosage: 8 MG
     Route: 013
  3. LIPIODOL ULTRA-FLUID [Concomitant]
     Dosage: 1 ML
     Route: 013

REACTIONS (1)
  - SKIN DISORDER [None]
